FAERS Safety Report 4303581-1 (Version None)
Quarter: 2004Q1

REPORT INFORMATION
  Report Type: 
  Country: None (occurrence: None)
  Receive Date: 20040223
  Receipt Date: 20040213
  Transmission Date: 20041129
  Serious: Yes (Death)
  Sender: FDA-Public Use
  Company Number: USA-2004-0013106

PATIENT
  Age: 72 Year
  Sex: Male

DRUGS (5)
  1. OXYCONTIN [Suspect]
     Indication: PAIN
     Dosage: 40 MG, Q12H
  2. OXYCODONE HCL [Suspect]
     Indication: PAIN
  3. THEOPHYLLINE [Suspect]
     Indication: EMPHYSEMA
  4. XANAX [Concomitant]
  5. NITROGLYCERIN ^PHARMACIA-UPJOHN^ (GLYCERYL TRINITRATE) [Concomitant]

REACTIONS (7)
  - ANOREXIA [None]
  - DECREASED ACTIVITY [None]
  - DISORIENTATION [None]
  - DYSPNOEA [None]
  - FALL [None]
  - INFLUENZA [None]
  - WEIGHT DECREASED [None]
